FAERS Safety Report 7437747-9 (Version None)
Quarter: 2011Q2

REPORT INFORMATION
  Report Type: 
  Country: None (occurrence: None)
  Receive Date: 20110426
  Receipt Date: 20110419
  Transmission Date: 20111010
  Serious: Yes (Other)
  Sender: FDA-Public Use
  Company Number: CN-PFIZER INC-2011085028

PATIENT

DRUGS (2)
  1. VFEND [Suspect]
     Dosage: 200MG, DAILY
  2. VFEND [Suspect]
     Dosage: LOADING DOSE, SINGLE

REACTIONS (1)
  - DEAFNESS UNILATERAL [None]
